FAERS Safety Report 5014837-1 (Version None)
Quarter: 2006Q2

REPORT INFORMATION
  Report Type: 
  Country: None (occurrence: None)
  Receive Date: 20060531
  Receipt Date: 20060517
  Transmission Date: 20061013
  Serious: Yes (Hospitalization)
  Sender: FDA-Public Use
  Company Number: PHNU2006DE02018

PATIENT
  Age: 62 Year
  Sex: Male

DRUGS (1)
  1. CLOZAPINE [Suspect]
     Indication: PSYCHOTIC DISORDER
     Dosage: 50 MG/DAY
     Route: 048

REACTIONS (5)
  - CHEMOTHERAPY [None]
  - METASTASES TO BONE [None]
  - METASTASIS [None]
  - NON-HODGKIN'S LYMPHOMA [None]
  - TRANSAMINASES INCREASED [None]
